FAERS Safety Report 8012366-4 (Version None)
Quarter: 2011Q4

REPORT INFORMATION
  Report Type: 
  Country: None (occurrence: None)
  Receive Date: 20111228
  Receipt Date: 20111214
  Transmission Date: 20120403
  Serious: Yes (Hospitalization)
  Sender: FDA-Public Use
  Company Number: US-AMGEN-USASP2011066887

PATIENT
  Age: 62 Year
  Sex: Male
  Weight: 68.027 kg

DRUGS (5)
  1. ACTOS [Concomitant]
     Indication: DIABETES MELLITUS
     Dosage: 45 MG, QD
  2. PROCRIT [Suspect]
     Indication: RENAL FAILURE CHRONIC
     Dosage: S20000 UNIT, QWK
     Route: 058
     Dates: start: 20070101
  3. ATENOLOL [Concomitant]
     Indication: HYPERTENSION
     Dosage: 50 MG, QD
  4. CYCLOSET [Concomitant]
     Indication: DIABETES MELLITUS
     Dosage: 0.8 MG, TID
  5. JANUVIA [Concomitant]
     Indication: DIABETES MELLITUS
     Dosage: UNK
     Dates: end: 20110901

REACTIONS (4)
  - DEHYDRATION [None]
  - GLYCOSYLATED HAEMOGLOBIN INCREASED [None]
  - BLOOD GLUCOSE ABNORMAL [None]
  - DRUG DOSE OMISSION [None]
